FAERS Safety Report 17694168 (Version 1)
Quarter: 2020Q2

REPORT INFORMATION
  Report Type: Spontaneous
  Country: US (occurrence: US)
  Receive Date: 20200422
  Receipt Date: 20200422
  Transmission Date: 20200714
  Serious: No
  Sender: FDA-Public Use
  Company Number: US-PFIZER INC-2020156148

PATIENT
  Sex: Male

DRUGS (1)
  1. EUCRISA [Suspect]
     Active Substance: CRISABOROLE
     Indication: PROPHYLAXIS
     Dosage: UNK

REACTIONS (7)
  - Eye swelling [Unknown]
  - Application site pain [Unknown]
  - Pain of skin [Unknown]
  - Swelling face [Unknown]
  - Erythema [Unknown]
  - Periorbital swelling [Unknown]
  - Contusion [Unknown]
